FAERS Safety Report 8589775-8 (Version None)
Quarter: 2012Q3

REPORT INFORMATION
  Report Type: 
  Country: None (occurrence: None)
  Receive Date: 20120813
  Receipt Date: 20120806
  Transmission Date: 20120928
  Serious: No
  Sender: FDA-Public Use
  Company Number: US-BAYER-2012-080356

PATIENT
  Sex: Female

DRUGS (1)
  1. MIRENA [Suspect]
     Indication: CONTRACEPTION

REACTIONS (10)
  - ANXIETY [None]
  - IRRITABILITY [None]
  - HEADACHE [None]
  - OCULAR ICTERUS [None]
  - CONSTIPATION [None]
  - PAIN IN EXTREMITY [None]
  - ACNE [None]
  - WEIGHT INCREASED [None]
  - PALPITATIONS [None]
  - BACK PAIN [None]
